FAERS Safety Report 9377949 (Version 3)
Quarter: 2014Q1

REPORT INFORMATION
  Report Type: Report from Study
  Country: US (occurrence: US)
  Receive Date: 20130701
  Receipt Date: 20140324
  Transmission Date: 20141002
  Serious: Yes (Hospitalization, Other)
  Sender: FDA-Public Use
  Company Number: US-BRISTOL-MYERS SQUIBB COMPANY-18995597

PATIENT
  Age: 78 Year
  Sex: Male
  Weight: 76 kg

DRUGS (14)
  1. CARBOPLATIN [Suspect]
     Indication: NON-SMALL CELL LUNG CANCER
     Dosage: LAST DSOE PRIOR EVENT:08MAY2013?AUC=5, DAYS 1 OF 3 WEEK CYCLE.
     Route: 042
     Dates: start: 20130508
  2. RAMUCIRUMAB [Suspect]
     Indication: NON-SMALL CELL LUNG CANCER
     Dosage: DAYS 1 OF 3 WEEK CYCLE.?LAST DOSE 08MAY13
     Route: 042
     Dates: start: 20130508
  3. GEMCITABINE [Suspect]
     Indication: NON-SMALL CELL LUNG CANCER
     Dosage: 1 AND 8DAY OF 3 WEEK CYCLE?LAST DOSE:15MAY13
     Route: 042
     Dates: start: 20130508
  4. FOLIC ACID [Concomitant]
  5. VITAMIN B12 [Concomitant]
  6. DEXAMETHASONE [Concomitant]
  7. DOXYCYCLINE [Concomitant]
     Dates: start: 20090401
  8. LASIX [Concomitant]
     Dates: start: 20130415
  9. OMEPRAZOLE [Concomitant]
     Dates: start: 20110215
  10. POTASSIUM CHLORIDE [Concomitant]
     Dates: start: 20130415
  11. SIMVASTATIN [Concomitant]
     Dates: start: 20000115
  12. SYNTHROID [Concomitant]
     Dates: start: 20090415
  13. CARDIZEM [Concomitant]
     Dates: start: 20130413
  14. FERROUS SULFATE [Concomitant]
     Dates: start: 20130324

REACTIONS (5)
  - Dyspnoea [Recovering/Resolving]
  - Cardiac failure congestive [Unknown]
  - Pleural effusion [Unknown]
  - Anaemia [Unknown]
  - Thrombocytopenia [Unknown]
